FAERS Safety Report 7939835-7 (Version None)
Quarter: 2011Q4

REPORT INFORMATION
  Report Type: 
  Country: None (occurrence: None)
  Receive Date: 20111125
  Receipt Date: 20111123
  Transmission Date: 20120403
  Serious: Yes (Life-Threatening, Disabling, Other)
  Sender: FDA-Public Use
  Company Number: PHFR2010GB04373

PATIENT
  Sex: Male

DRUGS (17)
  1. FOLIC ACID [Concomitant]
     Dosage: 5 MG NOCTE
     Route: 048
  2. RAMIPRIL [Concomitant]
     Indication: HYPERTENSION
     Dosage: 2.5 MG AMNE
     Route: 048
  3. ALBUTEROL SULFATE AUTOHALER [Concomitant]
     Dosage: 1-2 PUFF BD
  4. ARIPIPRAZOLE [Concomitant]
     Dosage: 15 MG MANE
     Route: 048
  5. BECLOMETHASONE DIPROPIONATE [Concomitant]
     Dosage: 1 PUFF, BID
  6. GAVISCON [Concomitant]
  7. CLOZARIL [Suspect]
     Dosage: 350 MG, DAILY
     Route: 048
     Dates: start: 20090910
  8. OMEPRAZOLE [Concomitant]
     Dosage: 40 MG, UNK
     Route: 048
  9. ACETAMINOPHEN [Concomitant]
     Dosage: 1 G, QID
     Route: 048
  10. FERROUS SULFATE TAB [Concomitant]
     Dosage: 200 MG, BID
     Route: 048
  11. DOMPERIDONE [Concomitant]
  12. PIRENZEPINE [Concomitant]
     Dosage: 50 MG, BID
  13. OXYGEN [Concomitant]
  14. SIMPLE LINCTUS [Concomitant]
  15. PIRENZEPINE [Concomitant]
     Indication: SALIVARY HYPERSECRETION
     Dosage: 50 MG, TID
     Route: 048
  16. SENNA [Concomitant]
     Dosage: 2 DF, QD
  17. 1-ALPHA-HYDROXYCHOLECALCIFEROL [Concomitant]
     Dosage: 20000 IU, QD

REACTIONS (11)
  - SLEEP APNOEA SYNDROME [None]
  - OXYGEN SATURATION DECREASED [None]
  - HYPERTENSION [None]
  - OBESITY [None]
  - LOWER RESPIRATORY TRACT INFECTION [None]
  - CYANOSIS [None]
  - HYPOXIA [None]
  - SOMNOLENCE [None]
  - PSYCHOTIC DISORDER [None]
  - OEDEMA PERIPHERAL [None]
  - CHRONIC RESPIRATORY FAILURE [None]
